FAERS Safety Report 13292352 (Version 2)
Quarter: 2017Q1

REPORT INFORMATION
  Report Type: Spontaneous
  Country: FR (occurrence: FR)
  Receive Date: 20170303
  Receipt Date: 20170309
  Transmission Date: 20170428
  Serious: Yes (Death, Other)
  Sender: FDA-Public Use
  Company Number: FR-TEVA-744262ISR

PATIENT
  Age: 71 Year
  Sex: Female

DRUGS (1)
  1. PACLITAXEL. [Suspect]
     Active Substance: PACLITAXEL
     Indication: OVARIAN CANCER
     Dosage: 80MG/M2 FOR 12 WEEKS
     Route: 065

REACTIONS (3)
  - Seizure [Not Recovered/Not Resolved]
  - Death [Fatal]
  - Posterior reversible encephalopathy syndrome [Fatal]
